FAERS Safety Report 14361076 (Version 1)
Quarter: 2018Q1

REPORT INFORMATION
  Report Type: Spontaneous
  Country: US (occurrence: US)
  Receive Date: 20180104
  Receipt Date: 20180104
  Transmission Date: 20180509
  Serious: Yes (Other)
  Sender: FDA-Public Use
  Company Number: None

PATIENT
  Age: 59 Year
  Sex: Female

DRUGS (2)
  1. SANDOSTATIN LAR DEPOT [Suspect]
     Active Substance: OCTREOTIDE ACETATE
     Indication: ACROMEGALY
     Dosage: FREQUENCY - EVERY 4 WEEKS
     Route: 030
     Dates: start: 20171009, end: 20171206
  2. SANDOSTATIN LAR DEPOT [Suspect]
     Active Substance: OCTREOTIDE ACETATE
     Indication: HYPOTHALAMO-PITUITARY DISORDER
     Dosage: FREQUENCY - EVERY 4 WEEKS
     Route: 030
     Dates: start: 20171009, end: 20171206

REACTIONS (1)
  - Rash [None]

NARRATIVE: CASE EVENT DATE: 20171206
